FAERS Safety Report 6397160-2 (Version None)
Quarter: 2009Q4

REPORT INFORMATION
  Report Type: 
  Country: None (occurrence: None)
  Receive Date: 20091012
  Receipt Date: 20091007
  Transmission Date: 20100525
  Serious: Yes (Other)
  Sender: FDA-Public Use
  Company Number: B0597327A

PATIENT
  Sex: Male
  Weight: 83 kg

DRUGS (4)
  1. KIVEXA [Suspect]
     Indication: HIV INFECTION
     Route: 065
     Dates: start: 20081201, end: 20090312
  2. KALETRA [Concomitant]
     Indication: HIV INFECTION
     Dates: start: 20070731
  3. ZIAGEN [Concomitant]
     Indication: HIV INFECTION
     Dosage: 600MG PER DAY
     Dates: start: 20090313
  4. EPIVIR [Concomitant]
     Indication: HIV INFECTION
     Dosage: 300MG PER DAY
     Dates: start: 20090313

REACTIONS (2)
  - BLOOD CREATINE PHOSPHOKINASE INCREASED [None]
  - DYSPNOEA [None]
